FAERS Safety Report 21350536 (Version 1)
Quarter: 2022Q3

REPORT INFORMATION
  Report Type: Spontaneous
  Country: US (occurrence: US)
  Receive Date: 20220919
  Receipt Date: 20220919
  Transmission Date: 20221027
  Serious: No
  Sender: FDA-Public Use
  Company Number: US-drreddys-SPO/USA/22/0154432

PATIENT
  Age: 16 Year
  Sex: Female

DRUGS (1)
  1. ZENATANE [Suspect]
     Active Substance: ISOTRETINOIN
     Indication: Product used for unknown indication
     Dosage: RMA ISSUE DATE: 04 MARCH 2022 06:12:50 PM, 07 APRIL 2022 12:17:44 PM, 03 MAY 2022 04:24:27 PM, 03 JU

REACTIONS (1)
  - Adverse drug reaction [Unknown]
